FAERS Safety Report 16549746 (Version 1)
Quarter: 2019Q3

REPORT INFORMATION
  Report Type: Spontaneous
  Country: None (occurrence: FR)
  Receive Date: 20190710
  Receipt Date: 20190710
  Transmission Date: 20191004
  Serious: Yes (Other)
  Sender: FDA-Public Use
  Company Number: FR-ORION CORPORATION ORION PHARMA-19_00006499

PATIENT
  Sex: Female

DRUGS (1)
  1. METHOTREXATE. [Suspect]
     Active Substance: METHOTREXATE
     Indication: SARCOIDOSIS
     Route: 065
     Dates: start: 200303

REACTIONS (5)
  - Vomiting [Unknown]
  - Drug ineffective [Recovered/Resolved]
  - Nausea [Unknown]
  - Dyspepsia [Unknown]
  - Hepatic function abnormal [Unknown]
